FAERS Safety Report 10204285 (Version 1)
Quarter: 2014Q2

REPORT INFORMATION
  Report Type: Spontaneous
  Country: US (occurrence: None)
  Receive Date: 20140527
  Receipt Date: 20140527
  Transmission Date: 20141212
  Serious: Yes (Hospitalization)
  Sender: FDA-Public Use
  Company Number: UCM201405-000083

PATIENT
  Age: 35 Year
  Sex: Female

DRUGS (10)
  1. DIVALPROEX SODIUM [Suspect]
  2. LACOSAMIDE (LACOSAMIDE) [Suspect]
  3. LEVETIRACETAM (LEVETIRACETAM) [Suspect]
  4. VIGABATRIN (VIGABATRIN) [Suspect]
  5. PHENOBARBITAL [Suspect]
  6. PROPOFOL [Suspect]
  7. KETAMINE [Suspect]
  8. CLOBAZAM [Concomitant]
  9. PREGABALIN [Concomitant]
  10. TOPIRAMATE [Concomitant]

REACTIONS (4)
  - Hyperkalaemia [None]
  - Acidosis [None]
  - Urine output decreased [None]
  - Continuous haemodiafiltration [None]
